FAERS Safety Report 8589169-5 (Version None)
Quarter: 2012Q2

REPORT INFORMATION
  Report Type: 
  Country: None (occurrence: None)
  Receive Date: 20120423
  Receipt Date: 20090715
  Transmission Date: 20120825
  Serious: Yes (Hospitalization)
  Sender: FDA-Public Use
  Company Number: PHEH2009US07580

PATIENT
  Age: 51 Year
  Sex: Female

DRUGS (2)
  1. ANTIHYPERTENSIVES (NO INGREDIENTS/SUBSTANCES) [Concomitant]
  2. FEMARA [Suspect]
     Indication: BREAST CANCER
     Dosage: 2.5 MG, QD, ORAL
     Route: 048
     Dates: start: 20090709

REACTIONS (1)
  - ANGIOEDEMA [None]
